FAERS Safety Report 7409661-6 (Version None)
Quarter: 2011Q2

REPORT INFORMATION
  Report Type: 
  Country: None (occurrence: None)
  Receive Date: 20110407
  Receipt Date: 20110407
  Transmission Date: 20111010
  Serious: No
  Sender: FDA-Public Use
  Company Number: None

PATIENT

DRUGS (1)
  1. CLEARASIL STAYCLEAR SULFUR 8% RESORCINOL 2% RICKITTBENCKISER [Suspect]
     Indication: ACNE
     Dosage: SMALL AMOUNT 1 DAILY OTHER
     Route: 050
     Dates: start: 20110303, end: 20110310

REACTIONS (2)
  - THERMAL BURN [None]
  - PRODUCT LABEL CONFUSION [None]
